FAERS Safety Report 21133738 (Version 1)
Quarter: 2022Q3

REPORT INFORMATION
  Report Type: Spontaneous
  Country: US (occurrence: None)
  Receive Date: 20220726
  Receipt Date: 20220726
  Transmission Date: 20221027
  Serious: Yes (Death)
  Sender: FDA-Public Use
  Company Number: None

PATIENT
  Age: 70 Year
  Sex: Male

DRUGS (1)
  1. LOKELMA [Suspect]
     Active Substance: SODIUM ZIRCONIUM CYCLOSILICATE
     Indication: Hyperkalaemia
     Dosage: OTHER FREQUENCY : QOD;?
     Route: 048
     Dates: start: 20220406, end: 20220722

REACTIONS (3)
  - Cerebrovascular accident [None]
  - Kidney infection [None]
  - Haemorrhage [None]

NARRATIVE: CASE EVENT DATE: 20220722
